FAERS Safety Report 6180322-7 (Version None)
Quarter: 2009Q2

REPORT INFORMATION
  Report Type: 
  Country: None (occurrence: None)
  Receive Date: 20090506
  Receipt Date: 20090427
  Transmission Date: 20091009
  Serious: Yes (Other)
  Sender: FDA-Public Use
  Company Number: US-BAXTER-2009BH004721

PATIENT
  Age: 34 Year
  Sex: Male

DRUGS (4)
  1. HEMOFIL M [Suspect]
     Indication: HAEMORRHAGE
     Route: 065
     Dates: start: 20090325, end: 20090325
  2. PREVACID [Concomitant]
  3. EPICOTE [Concomitant]
  4. TYLENOL [Concomitant]

REACTIONS (3)
  - BRONCHOSPASM [None]
  - PRURITUS [None]
  - URTICARIA [None]
